FAERS Safety Report 5329774-2 (Version None)
Quarter: 2007Q2

REPORT INFORMATION
  Report Type: 
  Country: None (occurrence: None)
  Receive Date: 20070521
  Receipt Date: 20070509
  Transmission Date: 20071010
  Serious: Yes (Hospitalization, Other)
  Sender: FDA-Public Use
  Company Number: PL-AMGEN-UK224207

PATIENT
  Age: 31 Year
  Sex: Female

DRUGS (7)
  1. ARANESP [Suspect]
     Indication: DIALYSIS
     Route: 042
  2. IRON [Concomitant]
  3. ZINC [Concomitant]
  4. FOLIC ACID [Concomitant]
  5. CALCIUM CHLORIDE [Concomitant]
  6. ASCORBIC ACID [Concomitant]
  7. VITAMIN D [Concomitant]

REACTIONS (5)
  - BLOOD ALBUMIN DECREASED [None]
  - CAESAREAN SECTION [None]
  - LABILE BLOOD PRESSURE [None]
  - PREMATURE LABOUR [None]
  - THERAPEUTIC RESPONSE DECREASED [None]
